FAERS Safety Report 14679949 (Version 2)
Quarter: 2018Q2

REPORT INFORMATION
  Report Type: Spontaneous
  Country: US (occurrence: US)
  Receive Date: 20180326
  Receipt Date: 20180410
  Transmission Date: 20180711
  Serious: Yes (Other)
  Sender: FDA-Public Use
  Company Number: US-TAKEDA-2018MPI003017

PATIENT

DRUGS (1)
  1. BORTEZOMIB [Suspect]
     Active Substance: BORTEZOMIB
     Indication: PROPHYLAXIS
     Dosage: 1.3 MG/M2, UNK
     Route: 065

REACTIONS (2)
  - Disseminated varicella zoster vaccine virus infection [Unknown]
  - Off label use [Unknown]
